FAERS Safety Report 8367471-X (Version None)
Quarter: 2012Q2

REPORT INFORMATION
  Report Type: 
  Country: None (occurrence: None)
  Receive Date: 20120517
  Receipt Date: 20120301
  Transmission Date: 20120825
  Serious: No
  Sender: FDA-Public Use
  Company Number: US-GLAXOSMITHKLINE-A0968251A

PATIENT
  Age: 78 Year
  Sex: Female

DRUGS (6)
  1. METHYLPREDNISOLONE [Concomitant]
  2. LEVOXYL [Concomitant]
  3. PANTOPRAZOLE [Concomitant]
  4. CALCIUM 500 [Concomitant]
  5. VOTRIENT [Suspect]
     Indication: PRODUCT USED FOR UNKNOWN INDICATION
     Dosage: 600MG PER DAY
     Route: 048
  6. COZAAR [Concomitant]

REACTIONS (1)
  - DIARRHOEA [None]
